FAERS Safety Report 17216259 (Version 1)
Quarter: 2019Q4

REPORT INFORMATION
  Report Type: Spontaneous
  Country: DE (occurrence: DE)
  Receive Date: 20191230
  Receipt Date: 20191230
  Transmission Date: 20200122
  Serious: Yes (Other)
  Sender: FDA-Public Use
  Company Number: DE-JNJFOC-20191230279

PATIENT

DRUGS (1)
  1. EVICEL [Suspect]
     Active Substance: FIBRINOGEN HUMAN\THROMBIN HUMAN
     Indication: TISSUE SEALING
     Route: 061

REACTIONS (8)
  - Haematoma [Unknown]
  - Incision site haematoma [Unknown]
  - Hernia [Unknown]
  - Product use in unapproved indication [Unknown]
  - Pain [Unknown]
  - Off label use [Unknown]
  - Seroma [Unknown]
  - Dysaesthesia [Unknown]
